FAERS Safety Report 9671922 (Version 1)
Quarter: 2013Q4

REPORT INFORMATION
  Report Type: Spontaneous
  Country: CN (occurrence: CN)
  Receive Date: 20131106
  Receipt Date: 20131106
  Transmission Date: 20140711
  Serious: Yes (Other)
  Sender: FDA-Public Use
  Company Number: CN-ROXANE LABORATORIES, INC.-2013-BI-34047GD

PATIENT
  Age: 64 Year
  Sex: Female

DRUGS (1)
  1. SERTRALINE [Suspect]
     Indication: DEPRESSION
     Dosage: 50 MG
     Dates: start: 20111112, end: 20111115

REACTIONS (2)
  - Angle closure glaucoma [Unknown]
  - Lens disorder [Unknown]
